FAERS Safety Report 17410950 (Version 1)
Quarter: 2020Q1

REPORT INFORMATION
  Report Type: Report from Study
  Country: US (occurrence: US)
  Receive Date: 20200212
  Receipt Date: 20200212
  Transmission Date: 20200409
  Serious: Yes (Other)
  Sender: FDA-Public Use
  Company Number: NVSC2020US034181

PATIENT
  Age: 72 Year
  Sex: Male

DRUGS (1)
  1. ENTRESTO [Suspect]
     Active Substance: SACUBITRIL\VALSARTAN
     Indication: CARDIAC FAILURE CONGESTIVE
     Dosage: 1 DF, (SACUBITRIL 97 MG/ VALSARTAN 103 MG) BID
     Route: 048
     Dates: start: 2019

REACTIONS (2)
  - Atrial fibrillation [Unknown]
  - Insomnia [Unknown]

NARRATIVE: CASE EVENT DATE: 202001
